FAERS Safety Report 25690945 (Version 1)
Quarter: 2025Q3

REPORT INFORMATION
  Report Type: Spontaneous
  Country: US (occurrence: None)
  Receive Date: 20250817
  Receipt Date: 20250817
  Transmission Date: 20251021
  Serious: Yes (unspecified)
  Sender: FDA-CTU
  Company Number: None

PATIENT
  Age: 35 Year
  Sex: Female

DRUGS (4)
  1. OFLOXACIN OTIC [Suspect]
     Active Substance: OFLOXACIN
     Indication: Ear infection
     Dosage: OTHER QUANTITY : 5 DROP(S);?FREQUENCY : EVERY 12 HOURS;?
     Route: 001
     Dates: start: 20250804, end: 20250806
  2. Liposomal Glutathione [Concomitant]
  3. Liposomal Luteolin [Concomitant]
  4. Liposomal Vit D3 [Concomitant]

REACTIONS (6)
  - Neuropathy peripheral [None]
  - Paraesthesia [None]
  - Anal inflammation [None]
  - Vulvovaginal inflammation [None]
  - Pelvic floor dysfunction [None]
  - Insomnia [None]

NARRATIVE: CASE EVENT DATE: 20250806
